FAERS Safety Report 6221729-9 (Version None)
Quarter: 2009Q2

REPORT INFORMATION
  Report Type: 
  Country: None (occurrence: None)
  Receive Date: 20090608
  Receipt Date: 20090527
  Transmission Date: 20091009
  Serious: Yes (Hospitalization)
  Sender: FDA-Public Use
  Company Number: 200AP002157

PATIENT
  Age: 11 Year
  Sex: Male

DRUGS (1)
  1. CYCLOSPORINE [Suspect]
     Dosage: PO
     Route: 048

REACTIONS (4)
  - GRAND MAL CONVULSION [None]
  - HALLUCINATION, VISUAL [None]
  - HYPERTENSION [None]
  - REVERSIBLE POSTERIOR LEUKOENCEPHALOPATHY SYNDROME [None]
